FAERS Safety Report 16974421 (Version 1)
Quarter: 2019Q4

REPORT INFORMATION
  Report Type: Spontaneous
  Country: US (occurrence: US)
  Receive Date: 20191030
  Receipt Date: 20191030
  Transmission Date: 20200122
  Serious: Yes (Hospitalization)
  Sender: FDA-Public Use
  Company Number: US-SA-2019SA297563

PATIENT
  Age: 34 Year
  Sex: Female

DRUGS (1)
  1. CEREZYME [Suspect]
     Active Substance: IMIGLUCERASE
     Dosage: 4000 U, QOW
     Route: 041
     Dates: start: 20161103

REACTIONS (2)
  - Chest pain [Unknown]
  - Pulmonary mass [Unknown]
